FAERS Safety Report 4628201-8 (Version None)
Quarter: 2005Q2

REPORT INFORMATION
  Report Type: 
  Country: None (occurrence: None)
  Receive Date: 20050401
  Receipt Date: 20050322
  Transmission Date: 20051028
  Serious: Yes (Hospitalization, Other)
  Sender: FDA-Public Use
  Company Number: 2005048211

PATIENT
  Age: 82 Year
  Sex: Male
  Weight: 86.1834 kg

DRUGS (5)
  1. XALATAN [Suspect]
     Indication: GLAUCOMA
     Dosage: 2 DROP 1 IN 1 D, OPHTHALMIC
     Route: 047
     Dates: start: 20020101
  2. BETAGAN [Suspect]
     Indication: GLAUCOMA
     Dosage: OPHTHALMIC
     Route: 047
  3. ASPIRIN [Concomitant]
  4. MECLOZINE HYDROCHLORIDE (MECLOZINE HYDROCHLORIDE) [Concomitant]
  5. SIMVASTATIN [Concomitant]

REACTIONS (5)
  - ARTERIAL OCCLUSIVE DISEASE [None]
  - CHEST DISCOMFORT [None]
  - MEDICATION ERROR [None]
  - VISION BLURRED [None]
  - VISUAL ACUITY REDUCED [None]
